FAERS Safety Report 9692137 (Version 1)
Quarter: 2013Q4

REPORT INFORMATION
  Report Type: Spontaneous
  Country: US (occurrence: US)
  Receive Date: 20131118
  Receipt Date: 20131118
  Transmission Date: 20140711
  Serious: No
  Sender: FDA-Public Use
  Company Number: US-BIOGENIDEC-2013BI040274

PATIENT
  Sex: Male

DRUGS (3)
  1. AVONEX [Suspect]
     Indication: MULTIPLE SCLEROSIS
     Route: 030
  2. AVONEX [Suspect]
     Indication: MULTIPLE SCLEROSIS
     Route: 030
     Dates: start: 20100707, end: 20131006
  3. AMPYRA [Concomitant]
     Indication: PRODUCT USED FOR UNKNOWN INDICATION

REACTIONS (8)
  - Tremor [Unknown]
  - VIIth nerve paralysis [Unknown]
  - Eye movement disorder [Recovered/Resolved]
  - Depressed level of consciousness [Unknown]
  - Loss of control of legs [Recovered/Resolved]
  - Dysarthria [Recovered/Resolved]
  - Depression [Unknown]
  - Multiple sclerosis relapse [Unknown]
